FAERS Safety Report 25401907 (Version 1)
Quarter: 2025Q2

REPORT INFORMATION
  Report Type: Spontaneous
  Country: US (occurrence: US)
  Receive Date: 20250605
  Receipt Date: 20250605
  Transmission Date: 20250716
  Serious: No
  Sender: MYLAN
  Company Number: US-MYLANLABS-2025M1043209

PATIENT
  Age: 70 Year
  Sex: Female
  Weight: 97.52 kg

DRUGS (12)
  1. WIXELA INHUB [Suspect]
     Active Substance: FLUTICASONE PROPIONATE\SALMETEROL XINAFOATE
     Indication: Chronic obstructive pulmonary disease
     Dosage: 100 PER 50 MICROGRAM, BID (TWO PUFFS A DAY, ONE IN THE MORNING AND ONE AT NIGHT)
     Dates: start: 20250506
  2. WIXELA INHUB [Suspect]
     Active Substance: FLUTICASONE PROPIONATE\SALMETEROL XINAFOATE
     Dosage: 100 PER 50 MICROGRAM, BID (TWO PUFFS A DAY, ONE IN THE MORNING AND ONE AT NIGHT)
     Route: 055
     Dates: start: 20250506
  3. WIXELA INHUB [Suspect]
     Active Substance: FLUTICASONE PROPIONATE\SALMETEROL XINAFOATE
     Dosage: 100 PER 50 MICROGRAM, BID (TWO PUFFS A DAY, ONE IN THE MORNING AND ONE AT NIGHT)
     Route: 055
     Dates: start: 20250506
  4. WIXELA INHUB [Suspect]
     Active Substance: FLUTICASONE PROPIONATE\SALMETEROL XINAFOATE
     Dosage: 100 PER 50 MICROGRAM, BID (TWO PUFFS A DAY, ONE IN THE MORNING AND ONE AT NIGHT)
     Dates: start: 20250506
  5. Rescue [Concomitant]
  6. Rescue [Concomitant]
     Route: 065
  7. Rescue [Concomitant]
     Route: 065
  8. Rescue [Concomitant]
  9. CARVEDILOL [Concomitant]
     Active Substance: CARVEDILOL
  10. CARVEDILOL [Concomitant]
     Active Substance: CARVEDILOL
     Route: 065
  11. CARVEDILOL [Concomitant]
     Active Substance: CARVEDILOL
     Route: 065
  12. CARVEDILOL [Concomitant]
     Active Substance: CARVEDILOL

REACTIONS (3)
  - Device mechanical issue [Unknown]
  - Device malfunction [Unknown]
  - Illness [Recovering/Resolving]

NARRATIVE: CASE EVENT DATE: 20250501
